FAERS Safety Report 19180905 (Version 1)
Quarter: 2021Q2

REPORT INFORMATION
  Report Type: Spontaneous
  Country: FR (occurrence: FR)
  Receive Date: 20210426
  Receipt Date: 20210426
  Transmission Date: 20210717
  Serious: Yes (Hospitalization)
  Sender: FDA-Public Use
  Company Number: NVSC2021FR088240

PATIENT
  Age: 84 Year
  Sex: Male
  Weight: 79 kg

DRUGS (6)
  1. CIPROFLOXACIN. [Suspect]
     Active Substance: CIPROFLOXACIN
     Indication: SEPSIS
     Dosage: 800 MG, QD
     Route: 042
     Dates: start: 20210327, end: 20210329
  2. VANCOMYCINE MYLAN [Suspect]
     Active Substance: VANCOMYCIN
     Indication: SEPSIS
     Dosage: 2 G, QD
     Route: 042
     Dates: start: 20210329, end: 20210406
  3. HEPARIN CALCIUM [Suspect]
     Active Substance: HEPARIN CALCIUM
     Indication: THROMBOSIS PROPHYLAXIS
     Dosage: 0.4 ML, QD
     Route: 058
     Dates: start: 20210325, end: 20210330
  4. AMOXICILLINE ACIDE CLAVULANIQUE SANDOZ [Suspect]
     Active Substance: AMOXICILLIN\CLAVULANATE POTASSIUM
     Indication: SEPSIS
     Dosage: 3 G, QD
     Route: 042
     Dates: start: 20210325, end: 20210327
  5. AMOXICILLINE ACIDE CLAVULANIQUE SANDOZ [Suspect]
     Active Substance: AMOXICILLIN\CLAVULANATE POTASSIUM
     Dosage: 6 G, QD
     Route: 042
     Dates: start: 20210327, end: 20210329
  6. PIPERACILLINE [Suspect]
     Active Substance: PIPERACILLIN SODIUM
     Indication: SEPSIS
     Dosage: 3 DF, QD
     Route: 042
     Dates: start: 20210329, end: 20210406

REACTIONS (1)
  - Cholestasis [Not Recovered/Not Resolved]

NARRATIVE: CASE EVENT DATE: 20210330
